FAERS Safety Report 5973896-X (Version None)
Quarter: 2008Q4

REPORT INFORMATION
  Report Type: 
  Country: None (occurrence: None)
  Receive Date: 20081125
  Receipt Date: 20081110
  Transmission Date: 20090506
  Serious: Yes (Other)
  Sender: FDA-Public Use
  Company Number: SPI200800374

PATIENT
  Age: 62 Year
  Sex: Female
  Weight: 68 kg

DRUGS (5)
  1. AMITIZA [Suspect]
     Indication: CONSTIPATION
     Dosage: 24 MCG, QD, ORAL
     Route: 048
     Dates: start: 20080101, end: 20080101
  2. MILK F MAGNESIA (MAGNESIA HYDROXIDE) [Concomitant]
  3. METFORMIN HCL [Concomitant]
  4. GLYBURIDE [Concomitant]
  5. TUMS /00108001/ (CALCIUM CARBONATE) [Concomitant]

REACTIONS (22)
  - ANOREXIA [None]
  - ANXIETY [None]
  - ASTHMA [None]
  - BACK PAIN [None]
  - BLOOD GLUCOSE INCREASED [None]
  - BRONCHITIS [None]
  - BURNING SENSATION [None]
  - CHEST PAIN [None]
  - CHOKING SENSATION [None]
  - COUGH [None]
  - DRUG INEFFECTIVE [None]
  - DYSPEPSIA [None]
  - DYSPNOEA [None]
  - FEELING ABNORMAL [None]
  - HEART RATE INCREASED [None]
  - INSOMNIA [None]
  - LUNG DISORDER [None]
  - LUNG INJURY [None]
  - MALAISE [None]
  - NAUSEA [None]
  - PARAESTHESIA [None]
  - WEIGHT DECREASED [None]
